FAERS Safety Report 5940350-0 (Version None)
Quarter: 2008Q4

REPORT INFORMATION
  Report Type: 
  Country: None (occurrence: None)
  Receive Date: 20081104
  Receipt Date: 20081104
  Transmission Date: 20090506
  Serious: Yes (Death, Hospitalization)
  Sender: FDA-Public Use
  Company Number: PHHO2006US17514

PATIENT
  Sex: Male

DRUGS (1)
  1. ELIDEL ASM+CRE [Suspect]
     Indication: DERMATITIS ATOPIC
     Dosage: APPLIED TWICE DAILY
     Route: 061
     Dates: start: 20040622, end: 20060725

REACTIONS (8)
  - HAEMATURIA [None]
  - LUNG DISORDER [None]
  - METASTASES TO LUNG [None]
  - NEPHRECTOMY [None]
  - NEPHROBLASTOMA [None]
  - PULMONARY MASS [None]
  - RENAL MASS [None]
  - TRACHEAL MASS [None]
